FAERS Safety Report 9230843 (Version 2)
Quarter: 2013Q2

REPORT INFORMATION
  Report Type: Spontaneous
  Country: JP (occurrence: JP)
  Receive Date: 20130415
  Receipt Date: 20130425
  Transmission Date: 20140414
  Serious: Yes (Other)
  Sender: FDA-Public Use
  Company Number: PHBS2006JP07529

PATIENT
  Age: 84 Year
  Sex: Male

DRUGS (3)
  1. TEGRETOL [Suspect]
     Indication: CEREBRAL INFARCTION
     Route: 048
  2. BAYASPIRIN [Concomitant]
     Indication: CEREBRAL INFARCTION
     Route: 048
  3. SELENICA R [Concomitant]
     Route: 048

REACTIONS (5)
  - Renal disorder [Unknown]
  - Altered state of consciousness [Unknown]
  - Drug reaction with eosinophilia and systemic symptoms [Recovering/Resolving]
  - Pyrexia [Unknown]
  - Rash [Unknown]
